FAERS Safety Report 17806451 (Version 1)
Quarter: 2020Q2

REPORT INFORMATION
  Report Type: Spontaneous
  Country: CN (occurrence: CN)
  Receive Date: 20200520
  Receipt Date: 20200520
  Transmission Date: 20200714
  Serious: Yes (Other)
  Sender: FDA-Public Use
  Company Number: CN-AMERICAN REGENT INC-2020001046

PATIENT
  Age: 37 Year
  Sex: Female

DRUGS (2)
  1. VENOFER [Suspect]
     Active Substance: IRON SUCROSE
     Indication: ANAEMIA
     Dosage: 200 MG (10 MILLILITER, INFUSION SPEED: 40 DROPS/MIN)
     Dates: start: 20180514, end: 20180514
  2. VENOFER [Suspect]
     Active Substance: IRON SUCROSE
     Indication: ECTOPIC PREGNANCY

REACTIONS (2)
  - Maternal exposure during pregnancy [Unknown]
  - Drug hypersensitivity [Recovered/Resolved]

NARRATIVE: CASE EVENT DATE: 20180514
